FAERS Safety Report 4438954-X (Version None)
Quarter: 2004Q3

REPORT INFORMATION
  Report Type: 
  Country: None (occurrence: None)
  Receive Date: 20040830
  Receipt Date: 20030211
  Transmission Date: 20050211
  Serious: Yes (Death)
  Sender: FDA-Public Use
  Company Number: 2004230115CA

PATIENT
  Sex: Male

DRUGS (7)
  1. ZYVOX [Suspect]
     Indication: STAPHYLOCOCCAL INFECTION
     Dosage: 600 MG, BID, IV
     Route: 042
     Dates: start: 20020802, end: 20020812
  2. MEROPENEM (MEROPENEM) [Concomitant]
  3. CEFTAZIDIME SODIUM [Concomitant]
  4. VANCOMYCIN [Concomitant]
  5. RIFAMPICIN [Concomitant]
  6. FUSIDIC ACID [Concomitant]
  7. CIPROFLOXACIN [Concomitant]

REACTIONS (2)
  - HEPATIC FAILURE [None]
  - SEPSIS [None]
